FAERS Safety Report 5397123-X (Version None)
Quarter: 2007Q3

REPORT INFORMATION
  Report Type: 
  Country: None (occurrence: None)
  Receive Date: 20070725
  Receipt Date: 20070716
  Transmission Date: 20080115
  Serious: Yes (Other)
  Sender: FDA-Public Use
  Company Number: AT-PFIZER INC-2007035862

PATIENT
  Age: 39 Year
  Sex: Female
  Weight: 68 kg

DRUGS (6)
  1. DEPOCON [Suspect]
     Indication: CONTRACEPTION
     Route: 030
     Dates: start: 20050201, end: 20050201
  2. DEPOCON [Suspect]
     Route: 030
     Dates: start: 20070401, end: 20070401
  3. HALCION [Concomitant]
  4. XANOR [Concomitant]
  5. CIPRALEX [Concomitant]
  6. SEROQUEL [Concomitant]

REACTIONS (1)
  - INJECTION SITE NECROSIS [None]
